FAERS Safety Report 10063553 (Version 3)
Quarter: 2014Q2

REPORT INFORMATION
  Report Type: Spontaneous
  Country: JP (occurrence: JP)
  Receive Date: 20140407
  Receipt Date: 20140518
  Transmission Date: 20141212
  Serious: Yes (Hospitalization)
  Sender: FDA-Public Use
  Company Number: JP-009507513-1404JPN003818

PATIENT
  Sex: Male

DRUGS (3)
  1. PEGINTRON [Suspect]
     Dosage: 100 MICROGRAM, QW
     Route: 058
     Dates: start: 201402, end: 201403
  2. REBETOL [Suspect]
     Dosage: DAILY DOSAGE UNKNOWN
     Route: 048
     Dates: start: 201402, end: 201403
  3. SIMEPREVIR [Suspect]
     Dosage: 100 MG, QD
     Route: 048
     Dates: start: 201402, end: 201403

REACTIONS (1)
  - Organising pneumonia [Recovered/Resolved]
